FAERS Safety Report 24354914 (Version 1)
Quarter: 2024Q3

REPORT INFORMATION
  Report Type: Spontaneous
  Country: MA (occurrence: MA)
  Receive Date: 20240923
  Receipt Date: 20240923
  Transmission Date: 20241016
  Serious: Yes (Death)
  Sender: BOEHRINGER INGELHEIM
  Company Number: MA-BoehringerIngelheim-2024-BI-052707

PATIENT
  Age: 63 Year
  Sex: Female

DRUGS (1)
  1. OFEV [Suspect]
     Active Substance: NINTEDANIB
     Indication: Interstitial lung disease
     Route: 048
     Dates: start: 202310, end: 202407

REACTIONS (1)
  - Infection [Fatal]

NARRATIVE: CASE EVENT DATE: 20240701
